FAERS Safety Report 14318108 (Version 1)
Quarter: 2017Q4

REPORT INFORMATION
  Report Type: Spontaneous
  Country: DK (occurrence: DK)
  Receive Date: 20171222
  Receipt Date: 20171222
  Transmission Date: 20180321
  Serious: Yes (Hospitalization)
  Sender: FDA-Public Use
  Company Number: DK-TEVA-2017-DK-833501

PATIENT
  Age: 67 Year
  Sex: Female

DRUGS (5)
  1. LETROZOLE. [Concomitant]
     Active Substance: LETROZOLE
     Indication: BREAST CANCER FEMALE
     Dosage: STRENGHT: 2.5 MG
     Route: 048
     Dates: start: 20150213
  2. UNIKALK BASIC [Concomitant]
     Indication: MINERAL SUPPLEMENTATION
     Dosage: STRENGHT: 400 MG CALCIUM + 38 ?G D3
     Route: 048
     Dates: start: 20150213
  3. AMLODIPINE [Concomitant]
     Active Substance: AMLODIPINE BESYLATE
     Indication: HYPERTENSION
     Dosage: STRENGHT: 10MG
     Route: 048
  4. ZOLEDRONSYRE ^ACTAVIS^ [Suspect]
     Active Substance: ZOLEDRONIC ACID
     Indication: OSTEOPOROSIS
     Dosage: STRENGHT: 4 MG/5 ML
     Route: 042
     Dates: start: 20160210, end: 201701
  5. LATANOPROST/TIMOLOL ^PFIZER^ [Concomitant]
     Indication: GLAUCOMA
     Dosage: DOSAGE: 1 DROP DAILY IN BOTH EYES, STRENGTH: 50 MICROGRAMS / ML + 5 MG / ML
     Route: 050
     Dates: start: 20150917, end: 20160210

REACTIONS (2)
  - Osteonecrosis of jaw [Not Recovered/Not Resolved]
  - Jaw operation [Recovered/Resolved]

NARRATIVE: CASE EVENT DATE: 201710
